FAERS Safety Report 7194437-8 (Version None)
Quarter: 2010Q4

REPORT INFORMATION
  Report Type: 
  Country: None (occurrence: None)
  Receive Date: 20101223
  Receipt Date: 20101214
  Transmission Date: 20110411
  Serious: Yes (Hospitalization)
  Sender: FDA-Public Use
  Company Number: JP-ASTRAZENECA-2010SE59920

PATIENT
  Age: 68 Year
  Sex: Male

DRUGS (6)
  1. BLOPRESS [Suspect]
     Indication: HYPERTENSION
     Route: 048
  2. AMLODIN [Concomitant]
     Route: 048
  3. CARDENALIN [Concomitant]
     Route: 048
  4. GASTER [Concomitant]
     Route: 065
  5. ASPIRIN [Concomitant]
     Route: 048
  6. SPIRIVA [Concomitant]
     Indication: EMPHYSEMA
     Route: 055

REACTIONS (1)
  - PNEUMONIA [None]
